FAERS Safety Report 8922429 (Version 3)
Quarter: 2013Q1

REPORT INFORMATION
  Report Type: Spontaneous
  Country: SA (occurrence: SA)
  Receive Date: 20121123
  Receipt Date: 20130129
  Transmission Date: 20140127
  Serious: Yes (Hospitalization)
  Sender: FDA-Public Use
  Company Number: SA-ABBOTT-12P-259-1010707-00

PATIENT
  Age: 24 Year
  Sex: Female

DRUGS (1)
  1. HUMIRA [Suspect]
     Indication: PRODUCT USED FOR UNKNOWN INDICATION

REACTIONS (10)
  - Hospitalisation [Not Recovered/Not Resolved]
  - Asthenia [Not Recovered/Not Resolved]
  - Staphylococcal skin infection [Unknown]
  - Psoriasis [Unknown]
  - Facial pain [Unknown]
  - Facial neuralgia [Unknown]
  - Pain in jaw [Unknown]
  - Loss of consciousness [Not Recovered/Not Resolved]
  - Rash pustular [Not Recovered/Not Resolved]
  - Headache [Not Recovered/Not Resolved]
